FAERS Safety Report 5191218-1 (Version None)
Quarter: 2006Q4

REPORT INFORMATION
  Report Type: 
  Country: None (occurrence: None)
  Receive Date: 20061218
  Receipt Date: 20061205
  Transmission Date: 20070319
  Serious: Yes (Hospitalization, Other)
  Sender: FDA-Public Use
  Company Number: SPV1-2006-00709

PATIENT
  Age: 74 Year
  Sex: Male

DRUGS (4)
  1. PENTASA [Suspect]
     Indication: COLITIS ULCERATIVE
     Dosage: 2250 MG DAILY, ORAL
     Route: 048
     Dates: start: 20060615, end: 20060810
  2. PREDNISOLONE SODIUM SUCCINATE (PREDNISOLONE SODIUM SUCCINATE) [Concomitant]
  3. PREDNISOLONE [Concomitant]
  4. SULFASALAZINE [Concomitant]

REACTIONS (1)
  - INTERSTITIAL LUNG DISEASE [None]
